FAERS Safety Report 13178504 (Version 2)
Quarter: 2017Q1

REPORT INFORMATION
  Report Type: Report from Study
  Country: IT (occurrence: IT)
  Receive Date: 20170202
  Receipt Date: 20170314
  Transmission Date: 20170428
  Serious: Yes (Death)
  Sender: FDA-Public Use
  Company Number: IT-TEVA-734967ACC

PATIENT

DRUGS (2)
  1. DONEZEPIL [Suspect]
     Active Substance: DONEPEZIL
     Indication: DEMENTIA ALZHEIMER^S TYPE
  2. DELECIT [Suspect]
     Active Substance: CHOLINE ALFOSCERATE
     Indication: DEMENTIA ALZHEIMER^S TYPE

REACTIONS (1)
  - Death [Fatal]
